FAERS Safety Report 22155127 (Version 6)
Quarter: 2023Q2

REPORT INFORMATION
  Report Type: Report from Study
  Country: FI (occurrence: FI)
  Receive Date: 20230330
  Receipt Date: 20230620
  Transmission Date: 20230721
  Serious: Yes (Death, Hospitalization)
  Sender: FDA-Public Use
  Company Number: FI-ASTELLAS-2023US009673

PATIENT
  Age: 85 Year
  Sex: Male

DRUGS (16)
  1. ENZALUTAMIDE [Suspect]
     Active Substance: ENZALUTAMIDE
     Indication: Prostate cancer
     Route: 048
     Dates: start: 20180109, end: 20230323
  2. ENZALUTAMIDE [Suspect]
     Active Substance: ENZALUTAMIDE
     Route: 048
     Dates: start: 20230406
  3. ENALAPRIL MALEATE [Concomitant]
     Active Substance: ENALAPRIL MALEATE
     Indication: Hypertension
     Dosage: UNK UNK, UNKNOWN FREQ.
     Route: 048
     Dates: start: 2007
  4. ROSUVASTATIN CALCIUM [Concomitant]
     Active Substance: ROSUVASTATIN CALCIUM
     Indication: Hypercholesterolaemia
     Dosage: UNK UNK, UNKNOWN FREQ.
     Route: 048
     Dates: start: 2012
  5. CALCIUM\CHOLECALCIFEROL [Concomitant]
     Active Substance: CALCIUM\CHOLECALCIFEROL
     Indication: Mineral supplementation
     Dosage: UNK UNK, UNKNOWN FREQ.
     Route: 048
     Dates: start: 20171212
  6. LOCOID [Concomitant]
     Active Substance: HYDROCORTISONE BUTYRATE
     Indication: Rash
     Dosage: 0.1 %, UNKNOWN FREQ.
     Route: 061
     Dates: start: 20180109
  7. DIETARY SUPPLEMENT [Concomitant]
     Active Substance: DIETARY SUPPLEMENT
     Indication: Rash
     Dosage: UNK UNK, UNKNOWN FREQ.
     Route: 061
     Dates: start: 20180109
  8. BIMATOPROST\TIMOLOL [Concomitant]
     Active Substance: BIMATOPROST\TIMOLOL
     Indication: Glaucoma
     Dosage: UNK UNK, UNKNOWN FREQ.
     Route: 047
     Dates: start: 2014, end: 20180329
  9. BIMATOPROST\TIMOLOL [Concomitant]
     Active Substance: BIMATOPROST\TIMOLOL
     Dosage: UNK UNK, UNKNOWN FREQ.
     Route: 047
     Dates: start: 20180515
  10. PROLIA [Concomitant]
     Active Substance: DENOSUMAB
     Indication: Prophylaxis
     Dosage: UNK UNK, UNKNOWN FREQ.
     Route: 030
     Dates: start: 20210624
  11. ACETAMINOPHEN [Concomitant]
     Active Substance: ACETAMINOPHEN
     Indication: Pneumomediastinum
     Dosage: UNK UNK, UNKNOWN FREQ.
     Route: 065
     Dates: start: 20210510, end: 20210517
  12. ACETAMINOPHEN [Concomitant]
     Active Substance: ACETAMINOPHEN
     Indication: Pneumothorax spontaneous
     Dosage: UNK UNK, UNKNOWN FREQ.
     Route: 048
     Dates: start: 20211112
  13. ACETAMINOPHEN [Concomitant]
     Active Substance: ACETAMINOPHEN
     Indication: Tooth extraction
  14. FIRMAGON [Concomitant]
     Active Substance: DEGARELIX ACETATE
     Indication: Prostate cancer
     Dosage: 240 MG, OTHER (QM)
     Route: 058
     Dates: start: 20221129, end: 20230104
  15. FIRMAGON [Concomitant]
     Active Substance: DEGARELIX ACETATE
     Dosage: 80 MG, OTHER (QM)
     Route: 058
     Dates: start: 20230105
  16. DORZOLAMIDE\TIMOLOL [Concomitant]
     Active Substance: DORZOLAMIDE\TIMOLOL
     Indication: Glaucoma
     Dosage: UNK UNK, UNKNOWN FREQ. (20MG/ML/5MG/ML)
     Route: 065
     Dates: start: 20220105

REACTIONS (3)
  - Embolism venous [Recovered/Resolved]
  - Pulmonary embolism [Recovered/Resolved]
  - Malignant neoplasm progression [Fatal]

NARRATIVE: CASE EVENT DATE: 20230322
